FAERS Safety Report 5579000-4 (Version None)
Quarter: 2007Q4

REPORT INFORMATION
  Report Type: 
  Country: None (occurrence: None)
  Receive Date: 20071228
  Receipt Date: 20071218
  Transmission Date: 20080405
  Serious: Yes (Death, Other)
  Sender: FDA-Public Use
  Company Number: 2007US003194

PATIENT
  Age: 58 Year
  Sex: Male

DRUGS (1)
  1. PROGRAF [Suspect]
     Dosage: 1 MG, UID/QD, ORAL; 1.5 MG, UID/QD, ORAL
     Route: 048

REACTIONS (16)
  - BACK PAIN [None]
  - BACTERIAL INFECTION [None]
  - BLOOD CULTURE POSITIVE [None]
  - CARDIAC MURMUR [None]
  - CULTURE POSITIVE [None]
  - EAR INFECTION [None]
  - ENDOCARDITIS STAPHYLOCOCCAL [None]
  - EXTRADURAL ABSCESS [None]
  - FALL [None]
  - HEPATIC FAILURE [None]
  - INTERVERTEBRAL DISCITIS [None]
  - METASTASIS [None]
  - MUSCULOSKELETAL PAIN [None]
  - OSTEOMYELITIS [None]
  - OTITIS EXTERNA [None]
  - POSTOPERATIVE WOUND INFECTION [None]
